FAERS Safety Report 19059624 (Version 1)
Quarter: 2021Q1

REPORT INFORMATION
  Report Type: Spontaneous
  Country: US (occurrence: US)
  Receive Date: 20210326
  Receipt Date: 20210326
  Transmission Date: 20210420
  Serious: No
  Sender: FDA-Public Use
  Company Number: US-SUN PHARMACEUTICAL INDUSTRIES LTD-2020R1-264654

PATIENT
  Sex: Female

DRUGS (1)
  1. METFORMIN [Suspect]
     Active Substance: METFORMIN HYDROCHLORIDE
     Indication: BLOOD GLUCOSE INCREASED
     Dosage: UNK
     Route: 065
     Dates: end: 20200824

REACTIONS (10)
  - Muscle spasms [Unknown]
  - Fatigue [Unknown]
  - Malabsorption [Unknown]
  - Impaired work ability [Unknown]
  - Asthenia [Unknown]
  - Gait disturbance [Unknown]
  - Myalgia [Unknown]
  - Product administration interrupted [Unknown]
  - Muscle atrophy [Recovering/Resolving]
  - Weight decreased [Recovering/Resolving]
